FAERS Safety Report 5827701-2 (Version None)
Quarter: 2008Q2

REPORT INFORMATION
  Report Type: 
  Country: None (occurrence: None)
  Receive Date: 20080601
  Receipt Date: 20080208
  Transmission Date: 20081010
  Serious: No
  Sender: FDA-Public Use
  Company Number: US200802002195

PATIENT
  Age: 76 Year
  Sex: Male
  Weight: 72.6 kg

DRUGS (4)
  1. BYETTA [Suspect]
     Indication: TYPE 2 DIABETES MELLITUS
     Dosage: 5 UG, 2/D, SUBCUTANEOUS
     Route: 058
     Dates: start: 20080118
  2. EXENATIDE 5MCG PEN, DISPOSABLE DEVICE (EXENATIDE PEN (5MCG)) [Concomitant]
  3. LOTREL [Concomitant]
  4. DRUG USED IN DIABETES [Concomitant]

REACTIONS (4)
  - BURNING SENSATION [None]
  - PRURITUS [None]
  - RASH [None]
  - WEIGHT DECREASED [None]
